FAERS Safety Report 6386142-2 (Version None)
Quarter: 2009Q4

REPORT INFORMATION
  Report Type: 
  Country: None (occurrence: None)
  Receive Date: 20091002
  Receipt Date: 20081230
  Transmission Date: 20100525
  Serious: Yes (Hospitalization)
  Sender: FDA-Public Use
  Company Number: US-ASTRAZENECA-2008UW28957

PATIENT
  Age: 68 Year
  Sex: Female
  Weight: 103.4 kg

DRUGS (3)
  1. ARIMIDEX [Suspect]
     Indication: BREAST CANCER
     Route: 048
     Dates: start: 20070101
  2. CLONIDINE [Concomitant]
  3. VYTORIN [Concomitant]

REACTIONS (4)
  - CARPAL TUNNEL SYNDROME [None]
  - HOT FLUSH [None]
  - JOINT SWELLING [None]
  - MYALGIA [None]
